FAERS Safety Report 5717237-1 (Version None)
Quarter: 2008Q2

REPORT INFORMATION
  Report Type: 
  Country: None (occurrence: None)
  Receive Date: 20080423
  Receipt Date: 20080418
  Transmission Date: 20081010
  Serious: Yes (Hospitalization, Other)
  Sender: FDA-Public Use
  Company Number: 2008SP000028

PATIENT
  Age: 59 Year
  Sex: Female
  Weight: 58.0604 kg

DRUGS (2)
  1. PEG-INTRON [Suspect]
     Indication: HEPATITIS C
     Dosage: SC
     Route: 058
     Dates: start: 20021114, end: 20031201
  2. REBETOL [Suspect]
     Indication: HEPATITIS C
     Dosage: PO
     Route: 048
     Dates: start: 20021114, end: 20031201

REACTIONS (3)
  - PULMONARY FIBROSIS [None]
  - RESPIRATORY ARREST [None]
  - RESPIRATORY FAILURE [None]
